FAERS Safety Report 9176102 (Version 1)
Quarter: 2012Q4

REPORT INFORMATION
  Report Type: 
  Country: US (occurrence: US)
  Receive Date: 20120918
  Receipt Date: 20120918
  Transmission Date: 20130627
  Serious: Yes (Hospitalization)
  Sender: FDA-Public Use
  Company Number: US-RB-044557-12

PATIENT
  Age: 65 Year
  Sex: Male

DRUGS (2)
  1. DELSYM ADULT ORANGE [Suspect]
     Indication: PRODUCT USED FOR UNKNOWN INDICATION
     Route: 048
     Dates: start: 20120907
  2. ASPIRIN [Concomitant]
     Indication: PRODUCT USED FOR UNKNOWN INDICATION

REACTIONS (4)
  - Disorientation [Not Recovered/Not Resolved]
  - Diplopia [Not Recovered/Not Resolved]
  - Abasia [Not Recovered/Not Resolved]
  - Overdose [Not Recovered/Not Resolved]
